FAERS Safety Report 15129388 (Version 1)
Quarter: 2018Q3

REPORT INFORMATION
  Report Type: Spontaneous
  Country: CZ (occurrence: CZ)
  Receive Date: 20180711
  Receipt Date: 20180711
  Transmission Date: 20181010
  Serious: Yes (Life-Threatening, Hospitalization, Disabling, Other)
  Sender: FDA-Public Use
  Company Number: CZ-GLAXOSMITHKLINE-CZ2018119758

PATIENT
  Age: 10 Year
  Sex: Female
  Weight: 42 kg

DRUGS (8)
  1. STRATTERA [Concomitant]
     Active Substance: ATOMOXETINE HYDROCHLORIDE
     Indication: ATTENTION DEFICIT/HYPERACTIVITY DISORDER
     Dosage: 40 MG, UNK
     Route: 048
  2. DEPAKINE CHRONO [Concomitant]
     Active Substance: VALPROATE SODIUM
     Indication: EPILEPSY
     Dosage: 300 MG, UNK
     Route: 048
  3. LAMICTAL [Suspect]
     Active Substance: LAMOTRIGINE
     Indication: EPILEPSY
     Dosage: 25 MG, UNK
     Route: 048
     Dates: start: 201804, end: 201806
  4. MIFLONID [Concomitant]
     Active Substance: BUDESONIDE
     Indication: ASTHMA
     Dosage: 1 DF, UNK
     Route: 055
  5. VENTOLIN [Concomitant]
     Active Substance: ALBUTEROL SULFATE
     Indication: ASTHMA
     Dosage: 2 DF, UNK
     Route: 055
  6. ASENTRA [Concomitant]
     Active Substance: SERTRALINE HYDROCHLORIDE
     Indication: ANTIDEPRESSANT THERAPY
     Dosage: 0.5 DF, UNK
     Route: 048
  7. DASSELTA [Concomitant]
     Active Substance: DESLORATADINE
     Indication: ANTIALLERGIC THERAPY
     Dosage: 5 MG, UNK
     Route: 048
  8. MEDORISPER [Concomitant]
     Active Substance: RISPERIDONE
     Indication: CONDUCT DISORDER
     Dosage: 0.5 MG, UNK
     Route: 048

REACTIONS (2)
  - Stevens-Johnson syndrome [Recovering/Resolving]
  - Acute generalised exanthematous pustulosis [Recovering/Resolving]

NARRATIVE: CASE EVENT DATE: 201806
